FAERS Safety Report 7347594-4 (Version None)
Quarter: 2011Q1

REPORT INFORMATION
  Report Type: 
  Country: None (occurrence: None)
  Receive Date: 20110218
  Receipt Date: 20100730
  Transmission Date: 20110831
  Serious: Yes (Other)
  Sender: FDA-Public Use
  Company Number: CART-1000043

PATIENT
  Age: 40 Year
  Sex: Female

DRUGS (1)
  1. CARTICEL [Suspect]
     Indication: CARTILAGE INJURY
     Dosage: INTRA-ARTICULAR
     Route: 014
     Dates: start: 20090408, end: 20090408

REACTIONS (1)
  - JOINT ADHESION [None]
